FAERS Safety Report 6806483-1 (Version None)
Quarter: 2010Q2

REPORT INFORMATION
  Report Type: 
  Country: None (occurrence: None)
  Receive Date: 20100629
  Receipt Date: 20080317
  Transmission Date: 20101027
  Serious: Yes (Other)
  Sender: FDA-Public Use
  Company Number: US-PFIZER INC-2008024146

PATIENT

DRUGS (1)
  1. BEXTRA [Suspect]
     Route: 048
     Dates: start: 20031123, end: 20041219

REACTIONS (1)
  - MYOCARDIAL INFARCTION [None]
